FAERS Safety Report 15210545 (Version 2)
Quarter: 2018Q3

REPORT INFORMATION
  Report Type: Spontaneous
  Country: ES (occurrence: ES)
  Receive Date: 20180728
  Receipt Date: 20180823
  Transmission Date: 20181010
  Serious: No
  Sender: FDA-Public Use
  Company Number: ES-AMGEN-ESPSP2018079532

PATIENT
  Sex: Female

DRUGS (2)
  1. MIMPARA [Suspect]
     Active Substance: CINACALCET HYDROCHLORIDE
     Dosage: 90 MG, UNK
     Route: 048
  2. MIMPARA [Suspect]
     Active Substance: CINACALCET HYDROCHLORIDE
     Indication: HYPERPARATHYROIDISM PRIMARY
     Dosage: UNK
     Route: 048

REACTIONS (1)
  - Incorrect route of drug administration [Unknown]
